FAERS Safety Report 9068258 (Version 1)
Quarter: 2013Q1

REPORT INFORMATION
  Report Type: Spontaneous
  Country: US (occurrence: US)
  Receive Date: 20130206
  Receipt Date: 20130206
  Transmission Date: 20140127
  Serious: No
  Sender: FDA-Public Use
  Company Number: US-009507513-1301USA014450

PATIENT
  Age: 66 Year
  Sex: Female

DRUGS (3)
  1. MIRALAX [Suspect]
     Indication: CONSTIPATION
     Dosage: UNK, UNKNOWN
     Route: 048
  2. FORTEO [Concomitant]
     Indication: OSTEOPOROSIS
     Dosage: UNK, UNKNOWN
  3. XALATAN [Concomitant]

REACTIONS (1)
  - Drug ineffective [Unknown]
